FAERS Safety Report 11894897 (Version 2)
Quarter: 2016Q1

REPORT INFORMATION
  Report Type: Spontaneous
  Country: US (occurrence: US)
  Receive Date: 20160107
  Receipt Date: 20160120
  Transmission Date: 20160526
  Serious: Yes (Other)
  Sender: FDA-Public Use
  Company Number: US-BECTON DICKINSON-2015BDN00004

PATIENT
  Age: 39 Year
  Sex: Male

DRUGS (1)
  1. CHLORAPREP WITH TINT [Suspect]
     Active Substance: CHLORHEXIDINE GLUCONATE\ISOPROPYL ALCOHOL
     Indication: INFECTION PROPHYLAXIS
     Dosage: RIGHT KNEE UP TO KNEE HOLDER DOWN TO TIP OF TOES
     Route: 061
     Dates: start: 20151116, end: 20151116

REACTIONS (4)
  - Skin exfoliation [Unknown]
  - Burns third degree [None]
  - Chemical burn of skin [Unknown]
  - Blister [Unknown]

NARRATIVE: CASE EVENT DATE: 20151116
